FAERS Safety Report 7485470-7 (Version None)
Quarter: 2011Q2

REPORT INFORMATION
  Report Type: 
  Country: None (occurrence: None)
  Receive Date: 20110516
  Receipt Date: 20110516
  Transmission Date: 20111010
  Serious: Yes (Other)
  Sender: FDA-Public Use
  Company Number: None

PATIENT
  Age: 49 Year
  Sex: Female
  Weight: 68.0396 kg

DRUGS (2)
  1. METHOCARBAMOL [Suspect]
     Indication: MUSCLE RELAXANT THERAPY
     Dosage: ONE 8 HRS PO
     Route: 048
     Dates: start: 20110510, end: 20110512
  2. LORITAB [Concomitant]

REACTIONS (10)
  - HEART RATE INCREASED [None]
  - DYSPNOEA [None]
  - HYPOPHAGIA [None]
  - CHEST PAIN [None]
  - FEELING ABNORMAL [None]
  - PAIN [None]
  - NAUSEA [None]
  - HYPERHIDROSIS [None]
  - STRESS [None]
  - FEELING HOT [None]
